FAERS Safety Report 19678974 (Version 1)
Quarter: 2021Q3

REPORT INFORMATION
  Report Type: Spontaneous
  Country: US (occurrence: US)
  Receive Date: 20210809
  Receipt Date: 20210809
  Transmission Date: 20211014
  Serious: Yes (Other)
  Sender: FDA-Public Use
  Company Number: US-ABBVIE-21K-163-3843038-00

PATIENT
  Sex: Male
  Weight: 58.11 kg

DRUGS (36)
  1. DEPAKOTE ER [Suspect]
     Active Substance: DIVALPROEX SODIUM
     Indication: PRODUCT USED FOR UNKNOWN INDICATION
     Route: 048
     Dates: start: 20191023, end: 20191023
  2. KEPPRA [Suspect]
     Active Substance: LEVETIRACETAM
     Route: 048
     Dates: end: 20160628
  3. KEPPRA [Suspect]
     Active Substance: LEVETIRACETAM
     Dosage: 500 MG
     Route: 048
     Dates: end: 20190117
  4. AMOXICILLIN. [Suspect]
     Active Substance: AMOXICILLIN
     Route: 048
     Dates: end: 20150831
  5. TEGRETOL [Suspect]
     Active Substance: CARBAMAZEPINE
     Route: 048
     Dates: end: 20170227
  6. TEGRETOL [Suspect]
     Active Substance: CARBAMAZEPINE
     Route: 048
     Dates: end: 20170103
  7. KEPPRA [Suspect]
     Active Substance: LEVETIRACETAM
     Dosage: 500 MG
     Route: 048
     Dates: end: 20190319
  8. DEPAKOTE [Suspect]
     Active Substance: DIVALPROEX SODIUM
     Indication: PRODUCT USED FOR UNKNOWN INDICATION
     Route: 065
     Dates: start: 20201022
  9. TEGRETOL [Suspect]
     Active Substance: CARBAMAZEPINE
     Route: 065
     Dates: end: 20170112
  10. TEGRETOL [Suspect]
     Active Substance: CARBAMAZEPINE
     Route: 048
     Dates: start: 20201228
  11. ZONEGRAN [Suspect]
     Active Substance: ZONISAMIDE
     Route: 048
     Dates: start: 20200829
  12. KEPPRA [Suspect]
     Active Substance: LEVETIRACETAM
     Route: 048
     Dates: start: 20180303, end: 201803
  13. KEPPRA [Suspect]
     Active Substance: LEVETIRACETAM
     Dosage: 500 MG
     Route: 048
     Dates: end: 20190620
  14. KEPPRA [Suspect]
     Active Substance: LEVETIRACETAM
     Dosage: 500 MG
     Route: 048
     Dates: end: 20190827
  15. DEPAKOTE ER [Suspect]
     Active Substance: DIVALPROEX SODIUM
     Route: 048
     Dates: end: 20200427
  16. TEGRETOL [Suspect]
     Active Substance: CARBAMAZEPINE
     Route: 065
     Dates: end: 20170106
  17. ZONEGRAN [Suspect]
     Active Substance: ZONISAMIDE
     Indication: PRODUCT USED FOR UNKNOWN INDICATION
     Dosage: 100 MG
     Route: 048
     Dates: start: 20170802, end: 20170803
  18. AMOXICILLIN. [Suspect]
     Active Substance: AMOXICILLIN
     Indication: PRODUCT USED FOR UNKNOWN INDICATION
     Route: 048
     Dates: end: 20131203
  19. TEGRETOL [Suspect]
     Active Substance: CARBAMAZEPINE
     Indication: PRODUCT USED FOR UNKNOWN INDICATION
     Route: 065
     Dates: end: 20150831
  20. TEGRETOL [Suspect]
     Active Substance: CARBAMAZEPINE
     Route: 065
     Dates: end: 20160414
  21. TEGRETOL [Suspect]
     Active Substance: CARBAMAZEPINE
     Route: 048
     Dates: start: 20191017
  22. TEGRETOL [Suspect]
     Active Substance: CARBAMAZEPINE
     Route: 048
     Dates: end: 20201102
  23. KEPPRA [Suspect]
     Active Substance: LEVETIRACETAM
     Route: 048
     Dates: end: 20171214
  24. KEPPRA [Suspect]
     Active Substance: LEVETIRACETAM
     Dosage: 500 MG
     Route: 048
     Dates: start: 20180307, end: 20180309
  25. KEPPRA [Suspect]
     Active Substance: LEVETIRACETAM
     Dosage: 500 MG
     Route: 048
     Dates: end: 20190807
  26. TEGRETOL [Suspect]
     Active Substance: CARBAMAZEPINE
     Route: 048
     Dates: end: 20170829
  27. TEGRETOL [Suspect]
     Active Substance: CARBAMAZEPINE
     Route: 048
     Dates: start: 20180215, end: 20180215
  28. XANAX [Suspect]
     Active Substance: ALPRAZOLAM
     Indication: PRODUCT USED FOR UNKNOWN INDICATION
     Route: 065
     Dates: end: 20210204
  29. TEGRETOL [Suspect]
     Active Substance: CARBAMAZEPINE
     Route: 065
     Dates: start: 20160303, end: 20160303
  30. KEPPRA [Suspect]
     Active Substance: LEVETIRACETAM
     Route: 048
     Dates: start: 20161128, end: 20161129
  31. KEPPRA [Suspect]
     Active Substance: LEVETIRACETAM
     Route: 048
     Dates: end: 20180215
  32. KEPPRA [Suspect]
     Active Substance: LEVETIRACETAM
     Dosage: 500 MG
     Route: 048
     Dates: end: 20190722
  33. TEGRETOL [Suspect]
     Active Substance: CARBAMAZEPINE
     Route: 065
     Dates: end: 20161010
  34. KEPPRA [Suspect]
     Active Substance: LEVETIRACETAM
     Indication: PRODUCT USED FOR UNKNOWN INDICATION
     Route: 048
     Dates: start: 20160303, end: 20160303
  35. KEPPRA [Suspect]
     Active Substance: LEVETIRACETAM
     Dosage: 500 MG
     Route: 048
     Dates: end: 20180316
  36. LORTADINE [Suspect]
     Active Substance: LORATADINE
     Indication: PRODUCT USED FOR UNKNOWN INDICATION
     Route: 065
     Dates: end: 20190807

REACTIONS (21)
  - Arthralgia [Unknown]
  - Fatigue [Unknown]
  - Chest pain [Unknown]
  - Depression [Unknown]
  - Cough [Unknown]
  - Seizure [Unknown]
  - Skin disorder [Unknown]
  - Amnesia [Unknown]
  - Balance disorder [Unknown]
  - Pain [Unknown]
  - Confusional state [Unknown]
  - Pain of skin [Unknown]
  - Feeding disorder [Unknown]
  - Dyspnoea [Unknown]
  - Chest discomfort [Unknown]
  - Bone pain [Unknown]
  - Apathy [Unknown]
  - Sleep disorder [Unknown]
  - Neck pain [Unknown]
  - Social anxiety disorder [Unknown]
  - Dizziness postural [Unknown]
